FAERS Safety Report 9084505 (Version 1)
Quarter: 2013Q1

REPORT INFORMATION
  Report Type: Spontaneous
  Country: US (occurrence: US)
  Receive Date: 20130130
  Receipt Date: 20130130
  Transmission Date: 20140127
  Serious: No
  Sender: FDA-Public Use
  Company Number: US-ABBOTT-12P-163-0973943-00

PATIENT
  Age: 32 None
  Sex: Male
  Weight: 76.73 kg

DRUGS (6)
  1. HUMIRA 40 MG/0.8 ML PEN [Suspect]
     Indication: CROHN^S DISEASE
     Dosage: FIRST LOADING DOSE
     Dates: start: 201109, end: 201109
  2. HUMIRA 40 MG/0.8 ML PEN [Suspect]
     Dosage: SECOND LOADING DOSE
     Dates: start: 2011, end: 2011
  3. HUMIRA 40 MG/0.8 ML PEN [Suspect]
     Dates: start: 2011
  4. WARFARIN [Concomitant]
     Indication: THROMBOSIS PROPHYLAXIS
  5. WARFARIN [Concomitant]
     Indication: CROHN^S DISEASE
  6. VITAMINS [Concomitant]
     Indication: VITAMIN SUPPLEMENTATION

REACTIONS (3)
  - Incorrect dose administered [Not Recovered/Not Resolved]
  - Injection site pain [Not Recovered/Not Resolved]
  - Injection site pain [Recovered/Resolved]
